FAERS Safety Report 4907959-4 (Version None)
Quarter: 2006Q1

REPORT INFORMATION
  Report Type: 
  Country: None (occurrence: None)
  Receive Date: 20060210
  Receipt Date: 20060208
  Transmission Date: 20060701
  Serious: Yes (Hospitalization)
  Sender: FDA-Public Use
  Company Number: 2006CG00282

PATIENT
  Age: 75 Year
  Sex: Male

DRUGS (5)
  1. MOPRAL [Suspect]
     Indication: OESOPHAGITIS
     Route: 048
  2. SOTALOL HCL [Suspect]
     Indication: ARRHYTHMIA
     Route: 048
  3. ELISOR [Suspect]
     Indication: HYPERCHOLESTEROLAEMIA
     Route: 048
  4. PLAVIX [Suspect]
     Indication: PROPHYLAXIS
     Route: 048
  5. DIALGIREX [Suspect]
     Indication: ARTHRALGIA
     Route: 048

REACTIONS (1)
  - PSEUDO LYMPHOMA [None]
